FAERS Safety Report 23467899 (Version 1)
Quarter: 2024Q1

REPORT INFORMATION
  Report Type: Spontaneous
  Country: CN (occurrence: CN)
  Receive Date: 20240201
  Receipt Date: 20240201
  Transmission Date: 20240410
  Serious: Yes (Hospitalization)
  Sender: FDA-Public Use
  Company Number: CN-ELI_LILLY_AND_COMPANY-CN202402000510

PATIENT
  Age: 35 Year
  Sex: Male

DRUGS (1)
  1. CIALIS [Suspect]
     Active Substance: TADALAFIL
     Indication: Erectile dysfunction
     Dosage: 10 MG, SINGLE
     Route: 048
     Dates: start: 20240108, end: 20240108

REACTIONS (7)
  - Perineal pain [Recovered/Resolved]
  - Perineal erythema [Unknown]
  - Perineal swelling [Unknown]
  - Pruritus [Recovered/Resolved]
  - Lip swelling [Recovered/Resolved]
  - Rash [Recovering/Resolving]
  - Intentional product misuse [Unknown]

NARRATIVE: CASE EVENT DATE: 20240108
